FAERS Safety Report 5972571-5 (Version None)
Quarter: 2008Q4

REPORT INFORMATION
  Report Type: 
  Country: None (occurrence: None)
  Receive Date: 20081201
  Receipt Date: 20081127
  Transmission Date: 20090506
  Serious: Yes (Other)
  Sender: FDA-Public Use
  Company Number: D0059649A

PATIENT
  Age: 63 Year
  Sex: Male

DRUGS (1)
  1. COMBIVIR [Suspect]
     Route: 048
     Dates: start: 20030101

REACTIONS (3)
  - ANGINA PECTORIS [None]
  - CARDIAC DISORDER [None]
  - DYSPNOEA [None]
